FAERS Safety Report 23123382 (Version 1)
Quarter: 2023Q4

REPORT INFORMATION
  Report Type: Spontaneous
  Country: BR (occurrence: BR)
  Receive Date: 20231030
  Receipt Date: 20231030
  Transmission Date: 20240110
  Serious: Yes (Death, Hospitalization)
  Sender: FDA-Public Use
  Company Number: BR-STERISCIENCE B.V.-2023-ST-002100

PATIENT
  Age: 4 Decade
  Sex: Male

DRUGS (7)
  1. MIDAZOLAM [Suspect]
     Active Substance: MIDAZOLAM
     Indication: General anaesthesia
     Dosage: 2 MILLIGRAM
     Route: 065
  2. FENTANYL [Suspect]
     Active Substance: FENTANYL\FENTANYL CITRATE
     Indication: Induction of anaesthesia
     Dosage: 150 MICROGRAM
     Route: 065
  3. PROPOFOL [Suspect]
     Active Substance: PROPOFOL
     Indication: Induction of anaesthesia
     Dosage: 170 MILLIGRAM
     Route: 065
  4. HALOTHANE [Suspect]
     Active Substance: HALOTHANE
     Indication: Maintenance of anaesthesia
     Dosage: UNK
     Route: 065
  5. NITROUS OXIDE [Suspect]
     Active Substance: NITROUS OXIDE
     Indication: Maintenance of anaesthesia
     Dosage: UNK
     Route: 065
  6. ATRACURIUM [Concomitant]
     Active Substance: ATRACURIUM
     Indication: Induction of anaesthesia
     Dosage: 50 MILLIGRAM
     Route: 065
  7. PROPYLTHIOURACIL [Concomitant]
     Active Substance: PROPYLTHIOURACIL
     Indication: Graves^ disease
     Dosage: UNK
     Route: 065

REACTIONS (1)
  - Hyperthermia malignant [Fatal]
